FAERS Safety Report 16236475 (Version 12)
Quarter: 2023Q1

REPORT INFORMATION
  Report Type: Spontaneous
  Country: GB (occurrence: GB)
  Receive Date: 20190425
  Receipt Date: 20230112
  Transmission Date: 20230417
  Serious: Yes (Hospitalization, Other)
  Sender: FDA-Public Use
  Company Number: GB-AUROBINDO-AUR-APL-2019-022914

PATIENT
  Age: 55 Year
  Sex: Male

DRUGS (20)
  1. ATORVASTATIN [Suspect]
     Active Substance: ATORVASTATIN
     Indication: Product used for unknown indication
     Dosage: 120 MILLIGRAM, ONCE A DAY ((TOOK 3 DAYS WORTH OF MEDICATION - OVERDOSE)
     Route: 005
     Dates: start: 20190327
  2. METFORMIN [Suspect]
     Active Substance: METFORMIN HYDROCHLORIDE
     Indication: Product used for unknown indication
     Dosage: 3 GRAM, ONCE A DAY (TOOK 3 DAYS WORTH OF MEDICATION - OVERDOSE)
     Route: 065
     Dates: start: 20190327, end: 20190327
  3. METFORMIN [Suspect]
     Active Substance: METFORMIN HYDROCHLORIDE
     Dosage: 120 MILLIGRAM, ONCE A DAY
     Route: 065
     Dates: start: 20190327
  4. RAMIPRIL [Suspect]
     Active Substance: RAMIPRIL
     Indication: Product used for unknown indication
     Dosage: 7.5 MILLIGRAM, ONCE A DAY (TOOK 3 DAYS WORTH OF MEDICATION-OVERDOSE)
     Route: 065
     Dates: start: 20190327
  5. CLOZAPINE [Suspect]
     Active Substance: CLOZAPINE
     Indication: Product used for unknown indication
     Dosage: 1 GRAM, ONCE A DAY (1 G, 1X/DAY)
     Route: 065
     Dates: start: 20180805, end: 201808
  6. CLOZAPINE [Suspect]
     Active Substance: CLOZAPINE
     Dosage: UNK
     Route: 048
     Dates: start: 20180828, end: 201811
  7. CLOZAPINE [Suspect]
     Active Substance: CLOZAPINE
     Dosage: UNK
     Route: 048
     Dates: start: 20181120, end: 201901
  8. CLOZAPINE [Suspect]
     Active Substance: CLOZAPINE
     Dosage: UNK
     Route: 048
     Dates: start: 2019
  9. CLOZAPINE [Suspect]
     Active Substance: CLOZAPINE
     Dosage: UNK
     Route: 048
     Dates: start: 20190116, end: 201903
  10. CLOZAPINE [Suspect]
     Active Substance: CLOZAPINE
     Dosage: 1 GRAM, ONCE A DAY
     Route: 048
     Dates: start: 20190327, end: 20190327
  11. CLOZAPINE [Suspect]
     Active Substance: CLOZAPINE
     Indication: Product used for unknown indication
     Dosage: 1 GRAM, ONCE A DAY
     Route: 048
     Dates: start: 20050805, end: 201808
  12. CLOZAPINE [Suspect]
     Active Substance: CLOZAPINE
     Dosage: UNK
     Route: 048
     Dates: start: 20050805, end: 200508
  13. CLOZAPINE [Suspect]
     Active Substance: CLOZAPINE
     Dosage: UNK
     Route: 048
     Dates: start: 20180826, end: 201811
  14. CLOZAPINE [Suspect]
     Active Substance: CLOZAPINE
     Dosage: UNK
     Route: 048
     Dates: start: 20181120, end: 201901
  15. CLOZAPINE [Suspect]
     Active Substance: CLOZAPINE
     Dosage: UNK
     Route: 048
     Dates: start: 2019
  16. CLOZAPINE [Suspect]
     Active Substance: CLOZAPINE
     Dosage: UNK
     Route: 048
     Dates: start: 20190116, end: 201903
  17. CLOZAPINE [Suspect]
     Active Substance: CLOZAPINE
     Dosage: 1 GRAM, ONCE A DAY (TOOK 3 DAYS WORTH OF MEDICATION - OVERDOSE)
     Route: 048
     Dates: start: 20190327, end: 20190327
  18. CLOZAPINE [Suspect]
     Active Substance: CLOZAPINE
     Dosage: 2 GRAM, UNK (TOOK 3 DAYS WORTH OF MEDICATION - OVERDOSE)
     Route: 048
     Dates: start: 20190317, end: 20190317
  19. CLOZAPINE [Suspect]
     Active Substance: CLOZAPINE
     Dosage: 1 GRAM, ONCE A DAY (TOOK 3 DAYS WORTH OF MEDICATION - OVERDOSE)
     Route: 048
     Dates: start: 20190317, end: 20190317
  20. ATORVASTATIN [Suspect]
     Active Substance: ATORVASTATIN
     Indication: Product used for unknown indication
     Dosage: 120 MILLIGRAM, ONCE A DAY ((120 MG, QD (TOOK 3 DAYS WORTH OF MEDICATION)
     Route: 005
     Dates: start: 20190227

REACTIONS (14)
  - Body temperature decreased [Recovered/Resolved]
  - Blood glucose decreased [Recovered/Resolved]
  - Hypotension [Recovered/Resolved]
  - Metabolic acidosis [Recovered/Resolved]
  - Neutrophil count increased [Unknown]
  - Pneumonia aspiration [Recovering/Resolving]
  - Tricuspid valve incompetence [Unknown]
  - Tachycardia [Recovered/Resolved]
  - White blood cell count increased [Unknown]
  - Overdose [Recovered/Resolved]
  - Drug abuse [Unknown]
  - Intentional product misuse [Unknown]
  - Medication error [Unknown]
  - Off label use [Unknown]

NARRATIVE: CASE EVENT DATE: 20190301
